FAERS Safety Report 14813489 (Version 3)
Quarter: 2022Q1

REPORT INFORMATION
  Report Type: Spontaneous
  Country: ES (occurrence: ES)
  Receive Date: 20180426
  Receipt Date: 20220216
  Transmission Date: 20220424
  Serious: Yes (Life-Threatening, Hospitalization, Other)
  Sender: FDA-Public Use
  Company Number: ES-AUROBINDO-AUR-APL-2018-020931

PATIENT
  Age: 55 Year
  Sex: Male

DRUGS (3)
  1. ESCITALOPRAM [Suspect]
     Active Substance: ESCITALOPRAM OXALATE
     Indication: Abnormal behaviour
     Dosage: 15 MILLIGRAM, ONCE A DAY
     Route: 065
     Dates: start: 201402
  2. PANTOPRAZOLE [Suspect]
     Active Substance: PANTOPRAZOLE
     Indication: Gastric disorder
     Dosage: UNK
     Route: 065
  3. HALOPERIDOL [Suspect]
     Active Substance: HALOPERIDOL
     Indication: Behaviour disorder
     Dosage: 2 MILLIGRAM, ONCE A DAY
     Route: 065
     Dates: start: 201402

REACTIONS (8)
  - Cardio-respiratory arrest [Unknown]
  - Electrocardiogram QT prolonged [Unknown]
  - Myocardial ischaemia [Unknown]
  - Torsade de pointes [Unknown]
  - Tachycardia [Unknown]
  - Condition aggravated [Recovered/Resolved]
  - Hypomagnesaemia [Recovered/Resolved]
  - Mental disorder [Recovered/Resolved]

NARRATIVE: CASE EVENT DATE: 20140901
